FAERS Safety Report 10539282 (Version 2)
Quarter: 2014Q4

REPORT INFORMATION
  Report Type: Spontaneous
  Country: CH (occurrence: CH)
  Receive Date: 20141023
  Receipt Date: 20141023
  Transmission Date: 20150529
  Serious: Yes (Hospitalization, Other)
  Sender: FDA-Public Use
  Company Number: GXKR2009CH07853

PATIENT
  Sex: Female
  Weight: 2.4 kg

DRUGS (11)
  1. TAVEGYL /SCH/ [Suspect]
     Active Substance: CLEMASTINE FUMARATE
     Dosage: MATERNAL DOSE: 2 MG
     Route: 064
     Dates: start: 20090113, end: 20090205
  2. CELESTONE [Suspect]
     Active Substance: BETAMETHASONE
     Dosage: MATERNAL DOSE: 12 MG
     Route: 064
     Dates: start: 20090112, end: 20090113
  3. ZANTAC [Suspect]
     Active Substance: RANITIDINE HYDROCHLORIDE
     Dosage: MATERNAL DOSE: 50 MG, CYCLIC
     Route: 064
     Dates: start: 20090113, end: 20090205
  4. TEMESTA [Concomitant]
     Active Substance: LORAZEPAM
     Dosage: UNK
     Route: 064
  5. LASIX [Concomitant]
     Active Substance: FUROSEMIDE
     Dosage: 20 MG
     Route: 064
  6. ZOFRAN [Suspect]
     Active Substance: ONDANSETRON HYDROCHLORIDE
     Dosage: MATERNAL DOSE: 8 MG, CYCLIC
     Route: 064
     Dates: start: 20090113, end: 20090205
  7. PRIMPERAN [Suspect]
     Active Substance: METOCLOPRAMIDE HYDROCHLORIDE
     Dosage: MATERNAL DOSE: 4X10 MG/DAY
     Route: 064
  8. PACLITAXEL. [Suspect]
     Active Substance: PACLITAXEL
     Dosage: MATERNAL DOSE: 330 MG CYCLIC; 2 TIMES
     Route: 064
     Dates: start: 20090113, end: 20090205
  9. DEXAMETHASONE. [Suspect]
     Active Substance: DEXAMETHASONE
     Dosage: MATERNAL DOSE: 20 MG, CYCLIC
     Route: 064
     Dates: start: 20090112, end: 20090205
  10. SOLU-MEDROL [Suspect]
     Active Substance: METHYLPREDNISOLONE SODIUM SUCCINATE
     Dosage: MATERNAL DOSE: 125 MG, CYCLIC
     Route: 064
     Dates: start: 20090113, end: 20090205
  11. CISPLATIN. [Suspect]
     Active Substance: CISPLATIN
     Indication: GENITAL LESION
     Dosage: MATERNAL DOSE: 140 MG, CYCLIC; 2 TIMES
     Route: 064
     Dates: start: 20090113, end: 20090205

REACTIONS (7)
  - Hypothermia [Recovered/Resolved]
  - Hypoglycaemia neonatal [Recovered/Resolved]
  - Exposure during pregnancy [Recovered/Resolved]
  - Premature baby [Recovered/Resolved]
  - Neonatal respiratory distress syndrome [Recovered/Resolved]
  - Jaundice neonatal [Recovered/Resolved]
  - Embryonal rhabdomyosarcoma [Not Recovered/Not Resolved]

NARRATIVE: CASE EVENT DATE: 20090112
